FAERS Safety Report 5801993-8 (Version None)
Quarter: 2008Q3

REPORT INFORMATION
  Report Type: 
  Country: None (occurrence: None)
  Receive Date: 20080707
  Receipt Date: 20080626
  Transmission Date: 20090109
  Serious: Yes (Hospitalization)
  Sender: FDA-Public Use
  Company Number: DE-ROCHE-571099

PATIENT
  Sex: Female
  Weight: 65 kg

DRUGS (3)
  1. BONIVA [Suspect]
     Indication: OSTEOPOROSIS
     Dosage: DRUG REPORTED AS: BONVIVA 150 MG FILMTABLETTEN
     Route: 048
     Dates: start: 20050101, end: 20080530
  2. TRI.-THIAZID [Concomitant]
     Route: 048
  3. CARVEDILOL [Concomitant]
     Dosage: DRUG NAME: CARVEDILOL 12.5
     Route: 048
     Dates: start: 20040101

REACTIONS (3)
  - GENERAL PHYSICAL HEALTH DETERIORATION [None]
  - MUSCULOSKELETAL PAIN [None]
  - PERICARDIAL EFFUSION [None]
